FAERS Safety Report 23453419 (Version 1)
Quarter: 2024Q1

REPORT INFORMATION
  Report Type: Spontaneous
  Country: US (occurrence: US)
  Receive Date: 20240129
  Receipt Date: 20240129
  Transmission Date: 20240410
  Serious: Yes (Hospitalization, Other)
  Sender: FDA-Public Use
  Company Number: US-PFIZER INC-PV202400009563

PATIENT
  Age: 53 Year
  Sex: Male

DRUGS (13)
  1. VORICONAZOLE [Interacting]
     Active Substance: VORICONAZOLE
     Indication: Fungal infection
     Dosage: 200 MG, 2X/DAY
     Dates: start: 200205, end: 2003
  2. VORICONAZOLE [Interacting]
     Active Substance: VORICONAZOLE
     Indication: Arthritis infective
  3. DILTIAZEM HYDROCHLORIDE [Interacting]
     Active Substance: DILTIAZEM HYDROCHLORIDE
     Dosage: UNK
  4. CELECOXIB [Interacting]
     Active Substance: CELECOXIB
     Dosage: UNK
  5. HYDROCHLOROTHIAZIDE\TRIAMTERENE [Interacting]
     Active Substance: HYDROCHLOROTHIAZIDE\TRIAMTERENE
     Dosage: UNK
  6. CANDESARTAN [Interacting]
     Active Substance: CANDESARTAN
     Dosage: UNK
  7. GLYBURIDE\METFORMIN [Interacting]
     Active Substance: GLYBURIDE\METFORMIN
     Dosage: UNK
  8. RIFAMPIN [Concomitant]
     Active Substance: RIFAMPIN
     Indication: Arthritis infective
     Dosage: UNK
  9. GATIFLOXACIN [Concomitant]
     Active Substance: GATIFLOXACIN
     Indication: Arthritis infective
     Dosage: UNK
  10. AZITHROMYCIN [Concomitant]
     Active Substance: AZITHROMYCIN
     Indication: Arthritis infective
     Dosage: UNK
  11. DOXYCYCLINE [Concomitant]
     Active Substance: DOXYCYCLINE
     Indication: Arthritis infective
     Dosage: UNK
  12. VANCOMYCIN [Concomitant]
     Active Substance: VANCOMYCIN
     Indication: Arthritis infective
     Dosage: UNK, INTRAVENOUS
     Route: 042
  13. ITRACONAZOLE [Concomitant]
     Active Substance: ITRACONAZOLE
     Dosage: UNK

REACTIONS (2)
  - Pseudoporphyria [Recovering/Resolving]
  - Drug interaction [Unknown]

NARRATIVE: CASE EVENT DATE: 20020101
